FAERS Safety Report 4802272-8 (Version None)
Quarter: 2005Q4

REPORT INFORMATION
  Report Type: 
  Country: None (occurrence: None)
  Receive Date: 20051012
  Receipt Date: 20050930
  Transmission Date: 20060501
  Serious: Yes (Hospitalization, Other)
  Sender: FDA-Public Use
  Company Number: 2005118329

PATIENT
  Age: 41 Year
  Sex: Female
  Weight: 65.7716 kg

DRUGS (15)
  1. NITROSTAT [Suspect]
     Indication: CHEST PAIN
     Dosage: 0.4 MG (0.4 MG, PRN)
     Dates: start: 20020101
  2. IMDUR [Suspect]
     Indication: ILL-DEFINED DISORDER
     Dosage: (30 MG)
     Dates: end: 20050501
  3. IMITREX [Suspect]
     Indication: ILL-DEFINED DISORDER
  4. NITRO PATCH (GLYCERYL TRINITRATE) [Concomitant]
  5. HYDROCHLOROTHIAZIDE [Concomitant]
  6. LORAZEPAM [Concomitant]
  7. PHENERGAN [Concomitant]
  8. INDERAL LA [Concomitant]
  9. EFFEXOR [Concomitant]
  10. CARDIZEM [Concomitant]
  11. AMBIEN [Concomitant]
  12. TIZANIDINE HCL [Concomitant]
  13. HYDROCODONE (HYDROCODONE) [Concomitant]
  14. ASPIRIN [Concomitant]
  15. PRAVACHOL [Concomitant]

REACTIONS (5)
  - AMNESIA [None]
  - CARDIAC DISORDER [None]
  - CEREBROVASCULAR ACCIDENT [None]
  - PRINZMETAL ANGINA [None]
  - TREATMENT NONCOMPLIANCE [None]
